FAERS Safety Report 14139904 (Version 1)
Quarter: 2017Q4

REPORT INFORMATION
  Report Type: Spontaneous
  Country: DE (occurrence: US)
  Receive Date: 20171030
  Receipt Date: 20171030
  Transmission Date: 20180321
  Serious: No
  Sender: FDA-Public Use
  Company Number: US-B.I. PHARMACEUTICALS,INC./RIDGEFIELD-2017-BI-050931

PATIENT

DRUGS (6)
  1. MICARDIS [Suspect]
     Active Substance: TELMISARTAN
     Dosage: DOSE: ONE HALF TABLET
     Route: 065
  2. MICARDIS [Suspect]
     Active Substance: TELMISARTAN
     Route: 065
  3. MICARDIS [Suspect]
     Active Substance: TELMISARTAN
     Dosage: DOSE: ONE HALF TABLET
     Route: 065
  4. MICARDIS [Suspect]
     Active Substance: TELMISARTAN
     Dosage: DOSE: HALF TABLET
     Route: 065
  5. MICARDIS [Suspect]
     Active Substance: TELMISARTAN
     Route: 065
  6. MICARDIS [Suspect]
     Active Substance: TELMISARTAN
     Indication: PRODUCT USED FOR UNKNOWN INDICATION
     Route: 065

REACTIONS (3)
  - Depression [Unknown]
  - Blood pressure decreased [Recovered/Resolved]
  - Muscular weakness [Unknown]
